FAERS Safety Report 9853502 (Version 1)
Quarter: 2014Q1

REPORT INFORMATION
  Report Type: Report from Study
  Country: PT (occurrence: PT)
  Receive Date: 20140129
  Receipt Date: 20140129
  Transmission Date: 20141002
  Serious: Yes (Other)
  Sender: FDA-Public Use
  Company Number: PT-VIIV HEALTHCARE LIMITED-B0964362A

PATIENT
  Age: 49 Year
  Sex: Male

DRUGS (3)
  1. RETROVIR [Suspect]
     Indication: HIV INFECTION
     Route: 065
  2. VIDEX [Suspect]
     Indication: HIV INFECTION
     Route: 065
  3. INDINAVIR [Suspect]
     Indication: HIV INFECTION
     Route: 065

REACTIONS (2)
  - Lipodystrophy acquired [Unknown]
  - Dyslipidaemia [Unknown]
